FAERS Safety Report 7893461-7 (Version None)
Quarter: 2011Q4

REPORT INFORMATION
  Report Type: 
  Country: None (occurrence: None)
  Receive Date: 20111104
  Receipt Date: 20111024
  Transmission Date: 20120403
  Serious: Yes (Hospitalization, Other)
  Sender: FDA-Public Use
  Company Number: US-ELI_LILLY_AND_COMPANY-US201107006845

PATIENT
  Sex: Female

DRUGS (2)
  1. FORTEO [Suspect]
     Dosage: 20 UG, QD
  2. FORTEO [Suspect]
     Indication: OSTEOPOROSIS
     Dosage: 20 UG, QD
     Route: 065
     Dates: start: 20110719

REACTIONS (8)
  - FALL [None]
  - ASTHENIA [None]
  - PAIN [None]
  - BLOOD PRESSURE DECREASED [None]
  - HEADACHE [None]
  - NAUSEA [None]
  - HYPERTENSION [None]
  - PELVIC FRACTURE [None]
